FAERS Safety Report 20864759 (Version 4)
Quarter: 2024Q3

REPORT INFORMATION
  Report Type: Spontaneous
  Country: PK (occurrence: PK)
  Receive Date: 20220524
  Receipt Date: 20240903
  Transmission Date: 20241016
  Serious: Yes (Hospitalization)
  Sender: AMGEN
  Company Number: PK-PFIZER INC-2021703614

PATIENT
  Age: 27 Year
  Sex: Female

DRUGS (6)
  1. ENBREL [Suspect]
     Active Substance: BENZYL ALCOHOL\ETANERCEPT
     Indication: Ankylosing spondylitis
     Dosage: 50 MG, WEEKLY
     Route: 058
  2. ENBREL [Suspect]
     Active Substance: BENZYL ALCOHOL\ETANERCEPT
     Dosage: 50 MG, WEEKLY
     Route: 058
     Dates: start: 20210616
  3. ENBREL [Suspect]
     Active Substance: BENZYL ALCOHOL\ETANERCEPT
     Dosage: 50 MG, WEEKLY
     Route: 058
  4. ACECLOFENAC [Concomitant]
     Active Substance: ACECLOFENAC
     Dosage: 100 MG TWICE A DAY , AFTER MEAL (1+1)
  5. ACECLOFENAC [Concomitant]
     Active Substance: ACECLOFENAC
     Dosage: 100MG AS PER NEEDED FOR PAIN
  6. DEXTOP [Concomitant]
     Dosage: 60MG ONCE A DAY ON EMPTY STOMACH IN MORNING

REACTIONS (5)
  - Temporomandibular pain and dysfunction syndrome [Unknown]
  - Joint swelling [Unknown]
  - Arthralgia [Unknown]
  - Condition aggravated [Unknown]
  - Off label use [Unknown]

NARRATIVE: CASE EVENT DATE: 20240603
